FAERS Safety Report 6993082-4 (Version None)
Quarter: 2010Q3

REPORT INFORMATION
  Report Type: 
  Country: None (occurrence: None)
  Receive Date: 20100917
  Receipt Date: 20100114
  Transmission Date: 20110219
  Serious: No
  Sender: FDA-Public Use
  Company Number: US-ASTRAZENECA-2010SE01774

PATIENT
  Sex: Female

DRUGS (4)
  1. SEROQUEL [Suspect]
     Indication: SLEEP DISORDER
     Dosage: 50-100 MG HS
     Route: 048
     Dates: start: 20080101, end: 20100109
  2. CLONAZEPAM [Concomitant]
  3. SERTRALINE HYDROCHLORIDE [Concomitant]
     Indication: ANXIETY
  4. SERTRALINE HYDROCHLORIDE [Concomitant]
     Indication: PANIC ATTACK

REACTIONS (5)
  - DRUG DOSE OMISSION [None]
  - INSOMNIA [None]
  - NAUSEA [None]
  - VOMITING [None]
  - WRONG TECHNIQUE IN DRUG USAGE PROCESS [None]
